FAERS Safety Report 16051177 (Version 1)
Quarter: 2019Q1

REPORT INFORMATION
  Report Type: Spontaneous
  Country: US (occurrence: US)
  Receive Date: 20190308
  Receipt Date: 20190308
  Transmission Date: 20190418
  Serious: No
  Sender: FDA-Public Use
  Company Number: US-PFIZER INC-2017123291

PATIENT
  Age: 14 Year
  Sex: Female

DRUGS (1)
  1. GENOTROPIN [Suspect]
     Active Substance: SOMATROPIN
     Indication: ROHHAD SYNDROME
     Dosage: 3.2 MG, UNK [3.2MG 6 DAYS A WEEK]

REACTIONS (3)
  - Blood luteinising hormone decreased [Unknown]
  - Product use in unapproved indication [Unknown]
  - Blood follicle stimulating hormone decreased [Unknown]

NARRATIVE: CASE EVENT DATE: 20180406
